FAERS Safety Report 5783419-6 (Version None)
Quarter: 2008Q2

REPORT INFORMATION
  Report Type: 
  Country: None (occurrence: None)
  Receive Date: 20080605
  Receipt Date: 20080317
  Transmission Date: 20081010
  Serious: No
  Sender: FDA-Public Use
  Company Number: A0715764A

PATIENT
  Sex: Female

DRUGS (1)
  1. ALLI [Suspect]
     Dates: start: 20080223, end: 20080226

REACTIONS (3)
  - DIARRHOEA [None]
  - FEELING ABNORMAL [None]
  - RECTAL DISCHARGE [None]
